FAERS Safety Report 9964515 (Version 5)
Quarter: 2014Q2

REPORT INFORMATION
  Report Type: Report from Study
  Country: KR (occurrence: KR)
  Receive Date: 20140305
  Receipt Date: 20140422
  Transmission Date: 20141212
  Serious: Yes (Hospitalization)
  Sender: FDA-Public Use
  Company Number: PHHO2014KR002263

PATIENT
  Sex: 0

DRUGS (9)
  1. AFINITOR [Suspect]
     Indication: BREAST CANCER METASTATIC
     Dosage: 10 MG, QD
     Route: 048
     Dates: start: 20131225, end: 20140128
  2. AFINITOR [Suspect]
     Dosage: 5 MG, QD
     Route: 048
     Dates: start: 20140224
  3. EXEMESTANE [Suspect]
     Indication: BREAST CANCER METASTATIC
     Dosage: 25 MG, QD
     Route: 048
     Dates: start: 20131225, end: 20140129
  4. EXEMESTANE [Suspect]
     Dosage: 25 MG, QD
     Route: 048
     Dates: start: 20140207
  5. LOSARTAN [Concomitant]
     Indication: HYPERTENSION
     Dosage: 50 MG, QD
     Route: 048
  6. RABETRA [Concomitant]
     Indication: PROPHYLAXIS
     Dosage: 10 MG, QD
     Route: 048
  7. SYNTHYROID [Concomitant]
     Indication: THYROIDECTOMY
     Dosage: 100 UG, QD
     Route: 048
  8. ALFOCHOLINE [Concomitant]
     Indication: PROPHYLAXIS
     Dosage: 400 MG, QD
     Route: 048
  9. MUCOSTA [Concomitant]
     Indication: STOMATITIS
     Dosage: 100 MG, TID
     Route: 048
     Dates: start: 20140107

REACTIONS (4)
  - Dyspepsia [Recovered/Resolved]
  - Pneumonitis [Recovered/Resolved]
  - Pneumonia [Recovered/Resolved]
  - Pulmonary oedema [Recovered/Resolved]
